FAERS Safety Report 22033559 (Version 4)
Quarter: 2023Q2

REPORT INFORMATION
  Report Type: Spontaneous
  Country: GB (occurrence: GB)
  Receive Date: 20230224
  Receipt Date: 20230502
  Transmission Date: 20230721
  Serious: Yes (Hospitalization)
  Sender: FDA-Public Use
  Company Number: GB-MYLANLABS-2023M1019992

PATIENT
  Sex: Female

DRUGS (4)
  1. CLOZARIL [Suspect]
     Active Substance: CLOZAPINE
     Indication: Schizophrenia
     Dosage: 100 MG MORNING AND 175 MG NIGHT
     Route: 048
     Dates: start: 20081103
  2. LITHIUM [Concomitant]
     Active Substance: LITHIUM
     Dosage: 500 MG NIGHT
     Route: 065
  3. DIAZEPAM [Concomitant]
     Active Substance: DIAZEPAM
     Dosage: 5 MILLIGRAM, QD
     Route: 065
  4. ZOPICLONE [Concomitant]
     Active Substance: ZOPICLONE
     Dosage: 7.5 MG NIGHT
     Route: 065

REACTIONS (2)
  - Schizophrenia [Not Recovered/Not Resolved]
  - Malaise [Not Recovered/Not Resolved]
